FAERS Safety Report 6048597-2 (Version None)
Quarter: 2009Q1

REPORT INFORMATION
  Report Type: 
  Country: None (occurrence: None)
  Receive Date: 20090121
  Receipt Date: 20090121
  Transmission Date: 20090719
  Serious: Yes (Hospitalization)
  Sender: FDA-Public Use
  Company Number: None

PATIENT
  Age: 68 Year
  Sex: Female
  Weight: 81.1939 kg

DRUGS (1)
  1. MORPHINE [Suspect]
     Indication: ARTHRALGIA

REACTIONS (3)
  - DELIRIUM [None]
  - FALL [None]
  - SEDATION [None]
